FAERS Safety Report 20299282 (Version 1)
Quarter: 2022Q1

REPORT INFORMATION
  Report Type: Spontaneous
  Country: DE (occurrence: DE)
  Receive Date: 20220105
  Receipt Date: 20220105
  Transmission Date: 20220423
  Serious: Yes (Hospitalization, Other)
  Sender: FDA-Public Use
  Company Number: None

PATIENT
  Age: 62 Year
  Sex: Female

DRUGS (4)
  1. AMPICILLIN AND SULBACTAM [Suspect]
     Active Substance: AMPICILLIN SODIUM\SULBACTAM SODIUM
     Indication: Upper respiratory tract infection
     Dosage: ()
  2. AMPICILLIN AND SULBACTAM [Suspect]
     Active Substance: AMPICILLIN SODIUM\SULBACTAM SODIUM
     Indication: Pneumonia
  3. AZITHROMYCIN [Suspect]
     Active Substance: AZITHROMYCIN
     Indication: Pneumonia
     Dosage: ()
  4. DIPHTHERIA AND TETANUS TOXOIDS AND PERTUSSIS VACCINE [Suspect]
     Active Substance: DIPHTHERIA AND TETANUS TOXOIDS AND PERTUSSIS VACCINE
     Indication: Prophylaxis
     Dosage: ()
     Route: 030
     Dates: start: 20180926

REACTIONS (18)
  - Central nervous system lesion [Unknown]
  - Upper respiratory tract infection [Recovered/Resolved]
  - Depressed level of consciousness [Recovered/Resolved]
  - White matter lesion [Unknown]
  - Acute disseminated encephalomyelitis [Recovered/Resolved]
  - General physical health deterioration [Unknown]
  - Meningitis bacterial [Unknown]
  - Hemiparesis [Recovered/Resolved]
  - Pyrexia [Recovered/Resolved]
  - Brain oedema [Unknown]
  - Monoparesis [Recovered/Resolved]
  - Meningoencephalitis bacterial [Recovered/Resolved]
  - Meningism [Recovered/Resolved]
  - Aphasia [Recovered/Resolved]
  - Somnolence [Recovered/Resolved]
  - Inflammation [Unknown]
  - Pneumonia [Recovered/Resolved]
  - Gait disturbance [Recovered/Resolved]

NARRATIVE: CASE EVENT DATE: 20181126
